FAERS Safety Report 10551434 (Version 1)
Quarter: 2014Q4

REPORT INFORMATION
  Report Type: Spontaneous
  Country: FR (occurrence: FR)
  Receive Date: 20141029
  Receipt Date: 20141029
  Transmission Date: 20150529
  Serious: Yes (Hospitalization)
  Sender: FDA-Public Use
  Company Number: FR-SA-2014SA143882

PATIENT
  Age: 91 Year
  Sex: Female

DRUGS (7)
  1. EUPANTOL [Concomitant]
     Active Substance: PANTOPRAZOLE SODIUM
  2. CRESTOR [Concomitant]
     Active Substance: ROSUVASTATIN CALCIUM
  3. PREVISCAN [Interacting]
     Active Substance: FLUINDIONE
     Dosage: FOEM-SCORED TABLET, STRENGTH-20 MG
     Route: 048
     Dates: end: 20140627
  4. APROVEL [Concomitant]
     Active Substance: IRBESARTAN
  5. CORDARONE [Concomitant]
     Active Substance: AMIODARONE HYDROCHLORIDE
  6. LASILIX [Concomitant]
     Active Substance: FUROSEMIDE
  7. PLAVIX [Suspect]
     Active Substance: CLOPIDOGREL BISULFATE
     Route: 048

REACTIONS (3)
  - Anaemia [Recovered/Resolved]
  - Drug interaction [Unknown]
  - Dyspnoea [Recovered/Resolved]

NARRATIVE: CASE EVENT DATE: 20140627
